FAERS Safety Report 8483418-X (Version None)
Quarter: 2012Q3

REPORT INFORMATION
  Report Type: 
  Country: None (occurrence: None)
  Receive Date: 20120702
  Receipt Date: 20120621
  Transmission Date: 20120928
  Serious: Yes (Other)
  Sender: FDA-Public Use
  Company Number: US-CELGENEUS-163-20785-12012157

PATIENT
  Sex: Female

DRUGS (7)
  1. NEUPOGEN [Concomitant]
     Route: 065
  2. CISPLATIN [Concomitant]
     Route: 065
  3. THALOMID [Suspect]
     Indication: MULTIPLE MYELOMA
     Dosage: 400 MILLIGRAM
     Route: 048
     Dates: start: 20010401, end: 20060301
  4. CYCLOPHOSPHAMIDE [Concomitant]
     Route: 065
  5. VELCADE [Concomitant]
     Route: 065
  6. DEXAMETHASONE [Concomitant]
     Route: 065
     Dates: start: 20040101
  7. ETOPOSIDE [Concomitant]
     Route: 065

REACTIONS (4)
  - DEEP VEIN THROMBOSIS [None]
  - BREAST CANCER IN SITU [None]
  - NEUROPATHY PERIPHERAL [None]
  - MYELODYSPLASTIC SYNDROME [None]
